FAERS Safety Report 25788465 (Version 1)
Quarter: 2025Q3

REPORT INFORMATION
  Report Type: Spontaneous
  Country: RS (occurrence: RS)
  Receive Date: 20250910
  Receipt Date: 20250910
  Transmission Date: 20251020
  Serious: Yes (Other)
  Sender: INSUD PHARMA
  Company Number: RS-INSUD PHARMA-2509RS07291

PATIENT

DRUGS (4)
  1. NUVESSA [Suspect]
     Active Substance: METRONIDAZOLE
     Indication: Gingival abscess
     Route: 048
  2. DOXYCYCLINE [Suspect]
     Active Substance: DOXYCYCLINE
     Indication: Gingival abscess
     Dosage: 100 MILLIGRAM, BID
     Route: 048
  3. PENICILLIN G [Suspect]
     Active Substance: PENICILLIN G
     Indication: Gingival abscess
     Route: 030
  4. GENTAMICIN [Suspect]
     Active Substance: GENTAMICIN
     Indication: Gingival abscess
     Route: 030

REACTIONS (9)
  - Acute generalised exanthematous pustulosis [Recovered/Resolved]
  - Skin exfoliation [Recovered/Resolved]
  - Skin burning sensation [Recovered/Resolved]
  - Dermatosis [Recovered/Resolved]
  - Pruritus [Recovered/Resolved]
  - Erythema [Recovered/Resolved]
  - Pustule [Recovered/Resolved]
  - Rash maculo-papular [Recovered/Resolved]
  - Pyrexia [Recovered/Resolved]
